FAERS Safety Report 13858039 (Version 1)
Quarter: 2017Q3

REPORT INFORMATION
  Report Type: Spontaneous
  Country: US (occurrence: US)
  Receive Date: 20170810
  Receipt Date: 20170810
  Transmission Date: 20171127
  Serious: No
  Sender: FDA-Public Use
  Company Number: None

PATIENT
  Age: 51 Year
  Sex: Female

DRUGS (1)
  1. BOTOX [Suspect]
     Active Substance: ONABOTULINUMTOXINA
     Indication: TORTICOLLIS
     Dosage: Q3MONTHS IM
     Route: 030
     Dates: start: 20170214, end: 20170504

REACTIONS (1)
  - Treatment failure [None]

NARRATIVE: CASE EVENT DATE: 20170214
